FAERS Safety Report 7509536-8 (Version None)
Quarter: 2011Q2

REPORT INFORMATION
  Report Type: 
  Country: None (occurrence: None)
  Receive Date: 20110527
  Receipt Date: 20110518
  Transmission Date: 20111010
  Serious: Yes (Hospitalization)
  Sender: FDA-Public Use
  Company Number: FI-AMGEN-FINSP2011022736

PATIENT
  Age: 43 Year
  Sex: Male

DRUGS (10)
  1. PREDNISONE [Concomitant]
     Dosage: 5-15MG ONCE A DAY AS NEEDED
     Dates: start: 20040201
  2. CALCICHEW-D3 [Concomitant]
     Indication: OSTEOPENIA
     Dosage: 2 TABLETS DAILY
     Dates: start: 20050201
  3. ORUDIS [Concomitant]
     Dosage: 200MG ONCE A DAY
     Dates: start: 20040101
  4. AMOXICILLIN TRIHYDRATE [Suspect]
     Indication: INFECTION
     Dosage: 500 MG, 3X/DAY
     Dates: start: 20090408, end: 20090414
  5. ORUDIS [Concomitant]
     Dosage: 100-300MG, AS NEEDED
     Dates: start: 20040401
  6. AMORION [Suspect]
     Indication: PYREXIA
  7. PREDNISOLON                        /00016201/ [Concomitant]
     Dosage: 5-10 MG ONCE A DAY
  8. PREDNISONE [Concomitant]
     Dosage: UNK
     Dates: end: 20031201
  9. ENBREL [Suspect]
     Indication: JUVENILE ARTHRITIS
     Dosage: 25 MG 1-2 TIMES PER WEEK
     Route: 058
     Dates: start: 20030801, end: 20100924
  10. MYOCRISIN [Concomitant]
     Dosage: 50 MG, MONTHLY
     Dates: end: 20030801

REACTIONS (15)
  - CHROMATURIA [None]
  - WEIGHT DECREASED [None]
  - INFECTION [None]
  - ALANINE AMINOTRANSFERASE INCREASED [None]
  - FATIGUE [None]
  - INFLUENZA [None]
  - RASH PRURITIC [None]
  - WEIGHT INCREASED [None]
  - PULMONARY SARCOIDOSIS [None]
  - DECREASED APPETITE [None]
  - DYSPEPSIA [None]
  - MUSCLE INJURY [None]
  - PYREXIA [None]
  - BLOOD ALKALINE PHOSPHATASE INCREASED [None]
  - NEUTROPENIA [None]
